FAERS Safety Report 5815759-6 (Version None)
Quarter: 2008Q3

REPORT INFORMATION
  Report Type: 
  Country: None (occurrence: None)
  Receive Date: 20080721
  Receipt Date: 20080715
  Transmission Date: 20090109
  Serious: Yes (Death)
  Sender: FDA-Public Use
  Company Number: US-TEVA-170472USA

PATIENT
  Sex: Male

DRUGS (14)
  1. CLOZAPINE [Suspect]
     Route: 048
     Dates: start: 20060401
  2. LORAZEPAM [Concomitant]
     Dates: start: 20080304
  3. BREVA [Concomitant]
     Dosage: 2 QID
     Route: 055
     Dates: start: 20080320
  4. ZIPRASIDONE HYDROCHLORIDE [Concomitant]
     Dates: start: 20080304
  5. IBUPROFEN [Concomitant]
     Dates: start: 20080304
  6. LAMOTRIGINE [Concomitant]
     Dates: start: 20080304
  7. MOLINDONE HCL [Concomitant]
  8. MULTI-VITAMIN [Concomitant]
     Dates: start: 20080304
  9. MYLANTA [Concomitant]
     Dates: start: 20080304
  10. PAROXETINE HCL [Concomitant]
     Dates: start: 20080304
  11. PANTOPRAZOLE SODIUM [Concomitant]
     Dates: start: 20080408
  12. TRAZODONE HCL [Concomitant]
     Dates: start: 20080304
  13. ACETAMINOPHEN [Concomitant]
     Dosage: PRN
     Dates: start: 20080304
  14. BUPROPION HCL [Concomitant]
     Dates: start: 20080304

REACTIONS (3)
  - CARDIAC DISORDER [None]
  - OBESITY [None]
  - PICKWICKIAN SYNDROME [None]
